APPROVED DRUG PRODUCT: MOXIFLOXACIN HYDROCHLORIDE
Active Ingredient: MOXIFLOXACIN HYDROCHLORIDE
Strength: EQ 400MG BASE
Dosage Form/Route: TABLET;ORAL
Application: A204635 | Product #001
Applicant: NATCO PHARMA LTD
Approved: Aug 31, 2015 | RLD: No | RS: No | Type: DISCN